FAERS Safety Report 23857442 (Version 1)
Quarter: 2024Q2

REPORT INFORMATION
  Report Type: Spontaneous
  Country: CA (occurrence: CA)
  Receive Date: 20240515
  Receipt Date: 20240515
  Transmission Date: 20240716
  Serious: Yes (Other)
  Sender: FDA-Public Use
  Company Number: CA-AUROBINDO-AUR-APL-2024-022197

PATIENT
  Age: 35 Year
  Sex: Female

DRUGS (3)
  1. SILDENAFIL [Suspect]
     Active Substance: SILDENAFIL
     Indication: Product used for unknown indication
     Dosage: UNK
     Route: 065
  2. MACITENTAN [Suspect]
     Active Substance: MACITENTAN
     Indication: Pulmonary hypertension
     Dosage: 10 MILLIGRAM, ONCE A DAY
     Route: 048
  3. MACITENTAN [Suspect]
     Active Substance: MACITENTAN
     Dosage: 10 MILLIGRAM, ONCE A DAY
     Route: 048

REACTIONS (5)
  - Headache [Unknown]
  - Hypotension [Unknown]
  - Palpitations [Unknown]
  - Weight increased [Unknown]
  - Transplant [Unknown]
